FAERS Safety Report 11001657 (Version 1)
Quarter: 2015Q2

REPORT INFORMATION
  Report Type: Spontaneous
  Country: US (occurrence: US)
  Receive Date: 20150408
  Receipt Date: 20150408
  Transmission Date: 20150821
  Serious: No
  Sender: FDA-Public Use
  Company Number: US-PFIZER INC-2015117606

PATIENT
  Sex: Female

DRUGS (1)
  1. LYRICA [Suspect]
     Active Substance: PREGABALIN
     Dosage: UNK

REACTIONS (7)
  - Asthenia [Unknown]
  - Feeling cold [Unknown]
  - Headache [Unknown]
  - Pain [Unknown]
  - Paraesthesia [Unknown]
  - Hot flush [Unknown]
  - Heart rate increased [Unknown]
